FAERS Safety Report 7792801-7 (Version None)
Quarter: 2011Q4

REPORT INFORMATION
  Report Type: 
  Country: None (occurrence: None)
  Receive Date: 20111003
  Receipt Date: 20110928
  Transmission Date: 20120403
  Serious: Yes (Death, Hospitalization)
  Sender: FDA-Public Use
  Company Number: US-GLAXOSMITHKLINE-A0880794A

PATIENT
  Age: 52 Year
  Sex: Male
  Weight: 81.8 kg

DRUGS (7)
  1. AVANDIA [Suspect]
     Indication: DIABETES MELLITUS
     Dosage: 4MG PER DAY
     Route: 048
     Dates: end: 20030628
  2. VIAGRA [Concomitant]
  3. LOTENSIN [Concomitant]
  4. COUMADIN [Concomitant]
  5. NORVASC [Concomitant]
  6. ATENOLOL [Concomitant]
  7. INSULIN [Concomitant]

REACTIONS (4)
  - MYOCARDIAL INFARCTION [None]
  - HYPOXIC-ISCHAEMIC ENCEPHALOPATHY [None]
  - CORONARY ARTERY DISEASE [None]
  - CARDIO-RESPIRATORY ARREST [None]
